FAERS Safety Report 4300946-9 (Version None)
Quarter: 2004Q1

REPORT INFORMATION
  Report Type: 
  Country: None (occurrence: None)
  Receive Date: 20040219
  Receipt Date: 20040205
  Transmission Date: 20041129
  Serious: Yes (Hospitalization)
  Sender: FDA-Public Use
  Company Number: 2004SE00604

PATIENT
  Age: 70 Year
  Sex: Female
  Weight: 97 kg

DRUGS (7)
  1. ANASTROZOL [Suspect]
     Indication: BREAST CANCER
     Dosage: 1 MG DAILY PO
     Route: 048
     Dates: start: 20021115
  2. INHIBACE [Concomitant]
  3. AMLOZEK [Concomitant]
  4. SIOFOR [Concomitant]
  5. TERTENSIF [Concomitant]
  6. ATENOLOL [Concomitant]
  7. EUTHYROX [Concomitant]

REACTIONS (2)
  - ATRIAL FIBRILLATION [None]
  - ELECTROCARDIOGRAM QRS COMPLEX PROLONGED [None]
